FAERS Safety Report 10166697 (Version 1)
Quarter: 2014Q2

REPORT INFORMATION
  Report Type: Spontaneous
  Country: GB (occurrence: None)
  Receive Date: 20140508
  Receipt Date: 20140508
  Transmission Date: 20141212
  Serious: Yes (Disabling, Other)
  Sender: FDA-Public Use
  Company Number: AUR-APL-2014-05348

PATIENT
  Age: 20 Year
  Sex: Male
  Weight: 78 kg

DRUGS (2)
  1. SERTRALINE (SERTRALINE) [Suspect]
     Indication: ANXIETY
     Route: 048
     Dates: start: 20110326, end: 20140326
  2. SERTRALINE (SERTRALINE) [Suspect]
     Indication: DEPRESSION
     Route: 048
     Dates: start: 20110326, end: 20140326

REACTIONS (10)
  - Cognitive disorder [None]
  - Quality of life decreased [None]
  - Amnesia [None]
  - Dyspraxia [None]
  - Coordination abnormal [None]
  - Depression [None]
  - Anxiety [None]
  - Activities of daily living impaired [None]
  - Amnesia [None]
  - Amnesia [None]
